FAERS Safety Report 9449099 (Version 1)
Quarter: 2013Q3

REPORT INFORMATION
  Report Type: Spontaneous
  Country: US (occurrence: US)
  Receive Date: 20130808
  Receipt Date: 20130808
  Transmission Date: 20140515
  Serious: Yes (Other)
  Sender: FDA-Public Use
  Company Number: CHPA2013US012309

PATIENT
  Age: 79 Year
  Sex: Female

DRUGS (9)
  1. VOLTAREN GEL [Suspect]
     Indication: OSTEOARTHRITIS
     Dosage: 4 G, QID
     Route: 061
     Dates: start: 201307
  2. CORTISONE [Suspect]
     Indication: OSTEOARTHRITIS
     Dosage: UNK, UNK
     Dates: start: 201112
  3. CORTISONE [Suspect]
     Dosage: UNK, UNK
     Dates: start: 201212
  4. CORTISONE [Suspect]
     Dosage: UNK, UNK
     Dates: start: 20130612
  5. CORTISONE [Suspect]
     Dosage: UNK, UNK
     Dates: start: 20130724
  6. TYLENOL [Concomitant]
     Indication: PAIN
     Dosage: UNK, UNK
  7. DILTIAZEM [Concomitant]
     Dosage: UNK, UNK
  8. BABY ASPIRIN [Concomitant]
     Dosage: UNK, UNK
  9. IBUPROFEN [Concomitant]
     Indication: PAIN
     Dosage: UNK, UNK

REACTIONS (1)
  - Diabetes mellitus [Recovering/Resolving]
